FAERS Safety Report 12600548 (Version 1)
Quarter: 2016Q3

REPORT INFORMATION
  Report Type: Spontaneous
  Country: MX (occurrence: MX)
  Receive Date: 20160727
  Receipt Date: 20160727
  Transmission Date: 20161109
  Serious: Yes (Other)
  Sender: FDA-Public Use
  Company Number: MX-SA-2016SA135521

PATIENT
  Sex: Male
  Weight: 94 kg

DRUGS (3)
  1. COAPROVEL [Suspect]
     Active Substance: HYDROCHLOROTHIAZIDE\IRBESARTAN
     Indication: HYPERTENSION
     Dosage: DOSE: 1 ORAL TABLET FROM 150 TO 300 MG OF IRBESARTAN + FROM 12.5 TO 25 MG OF HYDROCHLOROTHIAZIDE
     Route: 048
     Dates: start: 2014
  2. COAPROVEL [Suspect]
     Active Substance: HYDROCHLOROTHIAZIDE\IRBESARTAN
     Indication: HYPERTENSION
     Dosage: DOSE:ORAL TABLET OF 150 MG OF IRBESARTAN+ 12.5 MG OF HYDROCHLOROTHIAZIDE
     Route: 048
     Dates: start: 2013, end: 2014
  3. AMARYL [Concomitant]
     Active Substance: GLIMEPIRIDE
     Indication: TYPE 2 DIABETES MELLITUS
     Route: 048

REACTIONS (2)
  - Type 2 diabetes mellitus [Not Recovered/Not Resolved]
  - Hypertension [Recovered/Resolved]

NARRATIVE: CASE EVENT DATE: 2013
